FAERS Safety Report 4350490-8 (Version None)
Quarter: 2004Q2

REPORT INFORMATION
  Report Type: 
  Country: None (occurrence: None)
  Receive Date: 20040427
  Receipt Date: 20040205
  Transmission Date: 20050107
  Serious: No
  Sender: FDA-Public Use
  Company Number: 26881

PATIENT
  Age: 78 Year
  Sex: Female

DRUGS (7)
  1. VIGAMOX [Suspect]
     Indication: EYE INFECTION
     Dates: start: 20031006, end: 20031008
  2. PRED FORTE [Concomitant]
  3. ALPHAGAN SOLUTION [Concomitant]
  4. VALTREX [Concomitant]
  5. ACULAR [Concomitant]
  6. PRESERVATIVE-FREE TEARS [Concomitant]
  7. LID SOAKS [Concomitant]

REACTIONS (20)
  - ASTHENIA [None]
  - BACTERIAL INFECTION [None]
  - BONE PAIN [None]
  - CONJUNCTIVITIS [None]
  - ENDOPHTHALMITIS [None]
  - EYE DISCHARGE [None]
  - EYE PAIN [None]
  - EYE PRURITUS [None]
  - FATIGUE [None]
  - FUNGAL INFECTION [None]
  - GRAFT COMPLICATION [None]
  - HEADACHE [None]
  - IMPAIRED HEALING [None]
  - INTRAOCULAR PRESSURE INCREASED [None]
  - LACRIMATION INCREASED [None]
  - MALAISE [None]
  - MEDICAL DEVICE COMPLICATION [None]
  - SCAR [None]
  - STOMACH DISCOMFORT [None]
  - VISUAL ACUITY REDUCED [None]
